FAERS Safety Report 8806863 (Version 2)
Quarter: 2012Q4

REPORT INFORMATION
  Report Type: 
  Country: US (occurrence: US)
  Receive Date: 20120925
  Receipt Date: 20121017
  Transmission Date: 20130627
  Serious: No
  Sender: FDA-Public Use
  Company Number: US-PFIZER INC-2012236205

PATIENT
  Age: 48 Year
  Sex: Female
  Weight: 55.33 kg

DRUGS (3)
  1. RELPAX [Suspect]
     Indication: MIGRAINE
     Dosage: 40 mg, as needed
     Route: 048
  2. RELPAX [Suspect]
     Dosage: two tablets of eletriptan hydrobromide
     Route: 048
  3. IBUPROFEN [Concomitant]
     Indication: PAIN
     Dosage: UNK

REACTIONS (6)
  - Product quality issue [Unknown]
  - Incorrect dose administered [Unknown]
  - Somnolence [Unknown]
  - Dysphagia [Unknown]
  - Malaise [Unknown]
  - Vomiting [Unknown]
